FAERS Safety Report 7660259 (Version 2)
Quarter: 2020Q3

REPORT INFORMATION
  Report Type: Report from Study
  Country: DE (occurrence: DE)
  Receive Date: 20101108
  Receipt Date: 20101222
  Transmission Date: 20201105
  Serious: Yes (Hospitalization)
  Sender: FDA-Public Use
  Company Number: DE-JNJFOC-20071100941

PATIENT
  Age: 48 Year
  Sex: Male
  Weight: 90 kg

DRUGS (7)
  1. CNTO 1275 [Suspect]
     Active Substance: USTEKINUMAB
     Indication: PSORIASIS
     Route: 058
  2. CNTO 1275 [Suspect]
     Active Substance: USTEKINUMAB
     Route: 058
  3. CNTO 1275 [Suspect]
     Active Substance: USTEKINUMAB
     Route: 058
  4. CNTO 1275 [Suspect]
     Active Substance: USTEKINUMAB
     Route: 058
  5. CNTO 1275 [Suspect]
     Active Substance: USTEKINUMAB
     Route: 058
  6. CNTO 1275 [Suspect]
     Active Substance: USTEKINUMAB
     Route: 058
  7. CNTO 1275 [Suspect]
     Active Substance: USTEKINUMAB
     Route: 058

REACTIONS (1)
  - Gastric haemorrhage [Recovered/Resolved]

NARRATIVE: CASE EVENT DATE: 20071015
